FAERS Safety Report 10162323 (Version 2)
Quarter: 2014Q2

REPORT INFORMATION
  Report Type: Report from Study
  Country: ZA (occurrence: ZA)
  Receive Date: 20140509
  Receipt Date: 20140523
  Transmission Date: 20141212
  Serious: Yes (Death, Other)
  Sender: FDA-Public Use
  Company Number: ZA-ASTELLAS-2014EU004400

PATIENT
  Age: 72 Year
  Sex: Male

DRUGS (5)
  1. ENZALUTAMIDE [Suspect]
     Indication: PROSTATE CANCER METASTATIC
     Route: 048
     Dates: start: 20131218, end: 20140412
  2. ADALAT XL [Concomitant]
     Indication: HYPERTENSION
     Route: 048
     Dates: end: 20140412
  3. AMARYL [Concomitant]
     Indication: DIABETES MELLITUS
     Route: 048
     Dates: end: 20140412
  4. PIOGLITAZONE [Concomitant]
     Indication: DIABETES MELLITUS
     Route: 048
     Dates: end: 20140412
  5. CILIFT [Concomitant]
     Indication: DEPRESSION
     Route: 048
     Dates: end: 20140412

REACTIONS (1)
  - Neoplasm malignant [Fatal]
